FAERS Safety Report 8570835 (Version 4)
Quarter: 2014Q1

REPORT INFORMATION
  Report Type: Spontaneous
  Country: US (occurrence: US)
  Receive Date: 20120521
  Receipt Date: 20140321
  Transmission Date: 20141002
  Serious: Yes (Death, Hospitalization)
  Sender: FDA-Public Use
  Company Number: US-B.I. PHARMACEUTICALS,INC./RIDGEFIELD-2012-BP-11052BP

PATIENT
  Sex: Female
  Weight: 97.52 kg

DRUGS (12)
  1. PRADAXA [Suspect]
     Indication: ATRIAL FIBRILLATION
     Dosage: 300 MG
     Route: 048
     Dates: start: 20110514, end: 20111019
  2. PRADAXA [Suspect]
     Indication: ANTICOAGULANT THERAPY
  3. PROTONIX [Concomitant]
     Route: 065
  4. OMERPAZOLE [Concomitant]
     Route: 065
  5. TOPROL [Concomitant]
     Route: 065
     Dates: start: 201101, end: 201109
  6. LISINOPRIL [Concomitant]
     Route: 065
     Dates: start: 201102, end: 201109
  7. DILTIAZEM (CARDIA) [Concomitant]
     Route: 065
     Dates: start: 201103, end: 201109
  8. ASPRIN [Concomitant]
     Route: 065
  9. LIPITOR [Concomitant]
     Route: 065
     Dates: start: 201101, end: 201106
  10. CIPROFLOXACIN [Concomitant]
     Route: 065
  11. PREDNISONE [Concomitant]
     Route: 065
  12. ZOLPIDEM [Concomitant]
     Route: 065
     Dates: start: 201104, end: 201110

REACTIONS (10)
  - Rectal haemorrhage [Fatal]
  - Haematochezia [Fatal]
  - Haemorrhage [Fatal]
  - Sepsis [Fatal]
  - Abdominal abscess [Fatal]
  - Gastrointestinal haemorrhage [Unknown]
  - Cerebrovascular accident [Unknown]
  - Gastritis erosive [Unknown]
  - Oesophagitis [Unknown]
  - Duodenitis [Unknown]
